FAERS Safety Report 17875256 (Version 1)
Quarter: 2020Q2

REPORT INFORMATION
  Report Type: Spontaneous
  Country: FR (occurrence: FR)
  Receive Date: 20200609
  Receipt Date: 20200609
  Transmission Date: 20200714
  Serious: Yes (Hospitalization)
  Sender: FDA-Public Use
  Company Number: FR-ASTRAZENECA-2019SF92074

PATIENT
  Age: 56 Year
  Sex: Female

DRUGS (2)
  1. FASLODEX [Suspect]
     Active Substance: FULVESTRANT
     Indication: BREAST CANCER
     Dosage: NOT PRECISED
     Route: 030
     Dates: start: 20191004
  2. ALPELISIB (TEMPORARY USE AUTHORIZATION) [Suspect]
     Active Substance: ALPELISIB
     Indication: BREAST CANCER
     Dosage: NOT PRECISED
     Route: 048
     Dates: start: 20191004

REACTIONS (1)
  - Pneumonia [Recovered/Resolved]

NARRATIVE: CASE EVENT DATE: 201911
